FAERS Safety Report 25793375 (Version 2)
Quarter: 2025Q3

REPORT INFORMATION
  Report Type: Spontaneous
  Country: US (occurrence: US)
  Receive Date: 20250911
  Receipt Date: 20250917
  Transmission Date: 20251021
  Serious: Yes (Disabling)
  Sender: BIOGEN
  Company Number: US-BIOGEN-2025BI01323225

PATIENT
  Sex: Female

DRUGS (1)
  1. TYSABRI [Suspect]
     Active Substance: NATALIZUMAB
     Indication: Multiple sclerosis
     Route: 050
     Dates: start: 20150629, end: 20250626

REACTIONS (1)
  - JC virus infection [Unknown]
